FAERS Safety Report 13420666 (Version 1)
Quarter: 2017Q2

REPORT INFORMATION
  Report Type: Report from Study
  Country: None (occurrence: CZ)
  Receive Date: 20170409
  Receipt Date: 20170409
  Transmission Date: 20170830
  Serious: Yes (Other)
  Sender: FDA-Public Use
  Company Number: CZ-ABBVIE-17K-217-1933945-00

PATIENT
  Age: 67 Year
  Sex: Female

DRUGS (1)
  1. HUMIRA [Suspect]
     Active Substance: ADALIMUMAB
     Indication: RHEUMATOID ARTHRITIS
     Route: 058
     Dates: start: 20140903

REACTIONS (3)
  - Diverticulitis [Recovered/Resolved]
  - Intestinal haemorrhage [Recovered/Resolved]
  - Diarrhoea [Recovered/Resolved]

NARRATIVE: CASE EVENT DATE: 20161120
